FAERS Safety Report 8921849 (Version 1)
Quarter: 2012Q4

REPORT INFORMATION
  Report Type: 
  Country: US (occurrence: US)
  Receive Date: 20121122
  Receipt Date: 20121122
  Transmission Date: 20130627
  Serious: No
  Sender: FDA-Public Use
  Company Number: US-009507513-1211USA003514

PATIENT
  Sex: Female

DRUGS (1)
  1. MAXALT [Suspect]
     Indication: HEADACHE
     Dosage: cutting in a half and taking ^5mg^
     Route: 048

REACTIONS (3)
  - Drug hypersensitivity [Unknown]
  - Paraesthesia [Recovered/Resolved]
  - Wrong technique in drug usage process [Unknown]
